FAERS Safety Report 5002109-0 (Version None)
Quarter: 2006Q2

REPORT INFORMATION
  Report Type: 
  Country: None (occurrence: None)
  Receive Date: 20060515
  Receipt Date: 20050607
  Transmission Date: 20061013
  Serious: Yes (Hospitalization, Other)
  Sender: FDA-Public Use
  Company Number: US-MERCK-0506USA01148

PATIENT
  Age: 60 Year
  Sex: Male
  Weight: 123 kg

DRUGS (8)
  1. VIOXX [Suspect]
     Indication: ARTHRITIS
     Route: 048
     Dates: start: 20020101, end: 20040101
  2. EXCEDRIN (MIGRAINE) [Concomitant]
     Route: 065
  3. COREG [Concomitant]
     Route: 065
  4. ALTACE [Concomitant]
     Route: 065
  5. DICLOFENAC SODIUM [Concomitant]
     Route: 065
  6. AMBIEN [Concomitant]
     Route: 065
  7. NICOTINE [Concomitant]
     Indication: EX-SMOKER
     Route: 065
     Dates: start: 20031029
  8. LIPITOR [Concomitant]
     Indication: HYPERLIPIDAEMIA
     Route: 065

REACTIONS (7)
  - CHEST PAIN [None]
  - GASTRIC DISORDER [None]
  - HYPERTENSION [None]
  - INJURY [None]
  - MYOCARDIAL INFARCTION [None]
  - SPONDYLOLISTHESIS [None]
  - WOUND INFECTION [None]
